FAERS Safety Report 7372309-3 (Version None)
Quarter: 2011Q1

REPORT INFORMATION
  Report Type: 
  Country: None (occurrence: None)
  Receive Date: 20110324
  Receipt Date: 20110118
  Transmission Date: 20110831
  Serious: Yes (Disabling)
  Sender: FDA-Public Use
  Company Number: B0695297A

PATIENT
  Sex: Female
  Weight: 10 kg

DRUGS (28)
  1. ACYCLOVIR [Concomitant]
     Dosage: 150MG PER DAY
     Route: 042
     Dates: start: 20091203, end: 20100106
  2. ALKERAN [Suspect]
     Indication: ALLOGENIC BONE MARROW TRANSPLANTATION THERAPY
     Dosage: 25MG PER DAY
     Route: 042
     Dates: start: 20091206, end: 20091207
  3. DALACIN [Concomitant]
     Dosage: 315MG PER DAY
     Route: 042
     Dates: start: 20091218, end: 20091225
  4. POLYMYXIN-B-SULFATE [Concomitant]
     Dosage: .75IUAX PER DAY
     Route: 048
     Dates: start: 20091208, end: 20100119
  5. PRODIF [Concomitant]
     Dosage: 100MG PER DAY
     Route: 042
     Dates: start: 20091221, end: 20100103
  6. ROCEPHIN [Concomitant]
     Dosage: 600MG PER DAY
     Route: 042
     Dates: start: 20091207, end: 20091218
  7. ROCEPHIN [Concomitant]
     Dosage: 600MG PER DAY
     Route: 042
     Dates: start: 20100101, end: 20100105
  8. AMPHOTERICIN B [Concomitant]
     Dosage: 5ML PER DAY
     Route: 048
     Dates: start: 20091203, end: 20100119
  9. DAUNORUBICIN HYDROCHLORIDE [Suspect]
     Route: 042
  10. FLUDARA [Concomitant]
     Indication: ALLOGENIC BONE MARROW TRANSPLANTATION THERAPY
     Dosage: 15MGM2 PER DAY
     Route: 042
     Dates: start: 20091202, end: 20091205
  11. FUNGUARD [Concomitant]
     Dosage: 10MG PER DAY
     Route: 042
     Dates: start: 20100104, end: 20100114
  12. ALPROSTADIL ALFADEX [Concomitant]
     Dosage: 48MG PER DAY
     Route: 042
     Dates: start: 20091202, end: 20091225
  13. DILTIAZEM HCL [Concomitant]
     Dosage: 48MG PER DAY
     Route: 042
  14. URSO 250 [Concomitant]
     Dosage: 100MG PER DAY
     Route: 048
     Dates: start: 20091208, end: 20100309
  15. TACROLIMUS HYDRATE [Suspect]
     Indication: IMMUNOSUPPRESSION
     Dosage: .3MG PER DAY
     Route: 065
     Dates: start: 20091210, end: 20100312
  16. BUSULFAN [Concomitant]
     Indication: ALLOGENIC BONE MARROW TRANSPLANTATION THERAPY
     Dosage: 50MGM2 PER DAY
     Route: 042
     Dates: start: 20091202, end: 20091205
  17. METHOTREXATE [Concomitant]
     Indication: IMMUNOSUPPRESSION
     Dosage: 5MG PER DAY
     Route: 065
     Dates: start: 20091212, end: 20091217
  18. GRAN [Concomitant]
     Dates: start: 20091216, end: 20091226
  19. FUNGUARD [Concomitant]
     Dosage: 10MG PER DAY
     Route: 042
     Dates: start: 20091206, end: 20091220
  20. DILTIAZEM HCL [Concomitant]
     Dosage: 72MG PER DAY
     Route: 042
     Dates: start: 20091224
  21. DILTIAZEM HCL [Concomitant]
     Dosage: 60MG PER DAY
     Route: 042
  22. DILTIAZEM HCL [Concomitant]
     Dosage: 24MG PER DAY
     Route: 042
     Dates: end: 20091228
  23. RAMELTEON [Concomitant]
     Dosage: .21MG PER DAY
     Route: 042
     Dates: start: 20091203, end: 20091208
  24. FUROSEMIDE [Concomitant]
     Dosage: 10MG PER DAY
     Route: 042
     Dates: start: 20091224, end: 20100103
  25. FIRSTCIN [Concomitant]
     Dosage: 900MG PER DAY
     Route: 042
     Dates: start: 20091225, end: 20091231
  26. CYCLOPHOSPHAMIDE [Suspect]
     Route: 065
  27. ISODINE [Concomitant]
     Route: 002
     Dates: start: 20091203
  28. ZOVIRAX [Concomitant]
     Dosage: 340MG PER DAY
     Route: 048
     Dates: start: 20100107

REACTIONS (2)
  - RENAL IMPAIRMENT [None]
  - CARDIAC DISORDER [None]
